FAERS Safety Report 5802713-3 (Version None)
Quarter: 2008Q2

REPORT INFORMATION
  Report Type: 
  Country: None (occurrence: None)
  Receive Date: 20080627
  Receipt Date: 20070905
  Transmission Date: 20081010
  Serious: Yes (Other)
  Sender: FDA-Public Use
  Company Number: 2007-04092

PATIENT
  Age: 29 Year
  Sex: Female

DRUGS (1)
  1. INFED [Suspect]
     Dosage: SINGLE (4 MINUTE INFUSION), INTRAVENOUS
     Route: 042
     Dates: start: 20070607, end: 20070607

REACTIONS (10)
  - ANAPHYLACTIC REACTION [None]
  - ANXIETY [None]
  - ARRHYTHMIA [None]
  - BURNING SENSATION [None]
  - CHEST PAIN [None]
  - DYSPNOEA [None]
  - FLUSHING [None]
  - PALPITATIONS [None]
  - TACHYCARDIA [None]
  - TREMOR [None]
